FAERS Safety Report 5090626-7 (Version None)
Quarter: 2006Q3

REPORT INFORMATION
  Report Type: 
  Country: None (occurrence: None)
  Receive Date: 20060823
  Receipt Date: 20060807
  Transmission Date: 20061208
  Serious: Yes (Hospitalization)
  Sender: FDA-Public Use
  Company Number: 2005BI022022

PATIENT
  Age: 62 Year
  Sex: Female
  Weight: 81.1939 kg

DRUGS (9)
  1. ZEVALIN [Suspect]
     Indication: B-CELL LYMPHOMA
     Dosage: 4.8 MCI; 1X; IV
     Route: 042
     Dates: start: 20050622, end: 20050622
  2. ZEVALIN [Suspect]
     Indication: B-CELL LYMPHOMA
     Dosage: 36.6 MCG; 1X; IV
     Route: 042
     Dates: start: 20050609, end: 20050629
  3. RIXTUXIMAB [Concomitant]
  4. CARMUSTINE [Concomitant]
  5. ETOPOSIDE [Concomitant]
  6. CYTARABINE [Concomitant]
  7. PRANDIN [Concomitant]
  8. GLUCOTROL [Concomitant]
  9. MELPHALAN [Concomitant]

REACTIONS (22)
  - ABDOMINAL DISCOMFORT [None]
  - ANAEMIA [None]
  - CHEST DISCOMFORT [None]
  - CULTURE URINE POSITIVE [None]
  - DEHYDRATION [None]
  - DIARRHOEA [None]
  - GASTRITIS [None]
  - GASTROENTERITIS CRYPTOSPORIDIAL [None]
  - GASTROINTESTINAL DISORDER [None]
  - HYPOMAGNESAEMIA [None]
  - HYPOTENSION [None]
  - INCONTINENCE [None]
  - KLEBSIELLA INFECTION [None]
  - MICTURITION URGENCY [None]
  - MUSCLE SPASMS [None]
  - NAUSEA [None]
  - OCCULT BLOOD POSITIVE [None]
  - PLATELET COUNT DECREASED [None]
  - SALMONELLOSIS [None]
  - STEM CELL TRANSPLANT [None]
  - WEIGHT DECREASED [None]
  - WHITE BLOOD CELL COUNT DECREASED [None]
